FAERS Safety Report 19158252 (Version 1)
Quarter: 2021Q2

REPORT INFORMATION
  Report Type: Spontaneous
  Country: IR (occurrence: IR)
  Receive Date: 20210420
  Receipt Date: 20210420
  Transmission Date: 20210717
  Serious: Yes (Hospitalization, Other)
  Sender: FDA-Public Use
  Company Number: IR-MYLANLABS-2021M1023584

PATIENT
  Age: 77 Year
  Sex: Male

DRUGS (2)
  1. CISPLATIN. [Suspect]
     Active Substance: CISPLATIN
     Indication: ADENOCARCINOMA GASTRIC
     Dosage: 75 MILLIGRAM/SQ. METER HAD RECEIVED FIVE COURSES
     Route: 065
  2. FLUOROURACIL. [Suspect]
     Active Substance: FLUOROURACIL
     Indication: ADENOCARCINOMA GASTRIC
     Dosage: HAD RECEIVED FIVE COURSES OF 750 G/M2
     Route: 065

REACTIONS (4)
  - Odynophagia [Unknown]
  - Stomatitis [Unknown]
  - Oropharyngeal candidiasis [Recovering/Resolving]
  - Candida infection [Recovering/Resolving]
